FAERS Safety Report 7632451-6 (Version None)
Quarter: 2011Q3

REPORT INFORMATION
  Report Type: 
  Country: None (occurrence: None)
  Receive Date: 20110725
  Receipt Date: 20100910
  Transmission Date: 20111222
  Serious: No
  Sender: FDA-Public Use
  Company Number: US-BRISTOL-MYERS SQUIBB COMPANY-15281348

PATIENT
  Age: 85 Year
  Sex: Female

DRUGS (5)
  1. CYMBALTA [Suspect]
  2. XANAX [Concomitant]
  3. COUMADIN [Suspect]
     Dosage: TAKEN FOR YEARS; REDUCED TO HALF;
  4. ZOLPIDEM [Suspect]
     Indication: SLEEP DISORDER
     Dosage: FILM COATED TABS
     Route: 048
     Dates: start: 20060101
  5. VITAMIN TAB [Suspect]

REACTIONS (4)
  - ARTHROPATHY [None]
  - CONTUSION [None]
  - MUSCULOSKELETAL PAIN [None]
  - ABDOMINAL DISCOMFORT [None]
